FAERS Safety Report 8060468-9 (Version None)
Quarter: 2012Q1

REPORT INFORMATION
  Report Type: 
  Country: None (occurrence: None)
  Receive Date: 20120120
  Receipt Date: 20120109
  Transmission Date: 20120608
  Serious: Yes (Death)
  Sender: FDA-Public Use
  Company Number: AT-VALEANT-2011VX003617

PATIENT
  Age: 56 Year
  Sex: Male
  Weight: 68 kg

DRUGS (11)
  1. LEUCOVORIN CALCIUM [Suspect]
     Indication: COLORECTAL CANCER METASTATIC
     Route: 042
     Dates: start: 20110921, end: 20111019
  2. DURAGESIC-100 [Concomitant]
     Route: 062
     Dates: start: 20110907
  3. METOCLOPRAMIDE HYDROCHLORIDE [Concomitant]
     Route: 048
     Dates: start: 20111005
  4. FLUOROURACIL [Suspect]
     Indication: COLORECTAL CANCER METASTATIC
     Route: 042
     Dates: start: 20110921, end: 20111019
  5. BEVACIZUMAB [Suspect]
     Indication: COLORECTAL CANCER METASTATIC
     Route: 042
     Dates: start: 20110921, end: 20111102
  6. SUCRALFATE [Concomitant]
     Route: 048
     Dates: start: 20111005
  7. IRINOTECAN HCL [Suspect]
     Indication: COLORECTAL CANCER METASTATIC
     Route: 042
     Dates: start: 20110921, end: 20111019
  8. XEFO [Concomitant]
     Route: 048
     Dates: start: 20110921
  9. AMITRIPTYLINE HCL [Concomitant]
     Route: 048
     Dates: start: 20110921
  10. ENALAPRIL MALEATE [Concomitant]
     Route: 048
     Dates: start: 20111005
  11. PANTOPRAZOLE [Concomitant]
     Route: 048
     Dates: start: 20110921

REACTIONS (5)
  - NEOPLASM PROGRESSION [None]
  - RECTAL CANCER [None]
  - DEATH [None]
  - DISEASE PROGRESSION [None]
  - DIARRHOEA [None]
